FAERS Safety Report 4290112-8 (Version None)
Quarter: 2004Q1

REPORT INFORMATION
  Report Type: 
  Country: None (occurrence: None)
  Receive Date: 20040210
  Receipt Date: 20040123
  Transmission Date: 20041129
  Serious: Yes (Death)
  Sender: FDA-Public Use
  Company Number: US-ROCHE-357059

PATIENT
  Age: 59 Year
  Sex: Male
  Weight: 69.9 kg

DRUGS (1)
  1. FUZEON [Suspect]
     Indication: HIV INFECTION
     Route: 065
     Dates: start: 20030724

REACTIONS (4)
  - ATRIAL FIBRILLATION [None]
  - IMMUNE RECONSTITUTION SYNDROME [None]
  - PULMONARY OEDEMA [None]
  - VENTRICULAR FIBRILLATION [None]
